FAERS Safety Report 10446652 (Version 2)
Quarter: 2014Q3

REPORT INFORMATION
  Report Type: Spontaneous
  Country: FR (occurrence: FR)
  Receive Date: 20140911
  Receipt Date: 20140912
  Transmission Date: 20150326
  Serious: Yes (Hospitalization)
  Sender: FDA-Public Use
  Company Number: FR-ROCHE-1460945

PATIENT
  Age: 73 Year
  Sex: Female
  Weight: 60 kg

DRUGS (4)
  1. SPECIAFOLDINE [Concomitant]
     Active Substance: FOLIC ACID
  2. ROACTEMRA [Suspect]
     Active Substance: TOCILIZUMAB
     Indication: RHEUMATOID ARTHRITIS
     Dosage: LAST INFUSION: 01/SEP/2014
     Route: 042
     Dates: start: 201010
  3. METOJECT [Concomitant]
     Active Substance: METHOTREXATE SODIUM
  4. CACIT VITAMINE D3 [Concomitant]
     Active Substance: CALCIUM CARBONATE\CHOLECALCIFEROL

REACTIONS (1)
  - Pancreatitis acute [Recovered/Resolved with Sequelae]
